FAERS Safety Report 6695197-7 (Version None)
Quarter: 2010Q2

REPORT INFORMATION
  Report Type: 
  Country: None (occurrence: None)
  Receive Date: 20100423
  Receipt Date: 20100420
  Transmission Date: 20101027
  Serious: Yes (Death)
  Sender: FDA-Public Use
  Company Number: US-GILEAD-2010-0028650

PATIENT
  Age: 34 Year
  Sex: Female
  Weight: 49 kg

DRUGS (3)
  1. TRUVADA [Suspect]
     Indication: HIV INFECTION
     Route: 048
     Dates: start: 20090918, end: 20100307
  2. EFAVIRENZ [Suspect]
     Indication: HIV INFECTION
     Route: 048
     Dates: start: 20090918, end: 20100307
  3. SEPTRIN [Concomitant]

REACTIONS (1)
  - PNEUMONIA BACTERIAL [None]
